FAERS Safety Report 8131000-6 (Version None)
Quarter: 2012Q1

REPORT INFORMATION
  Report Type: 
  Country: None (occurrence: None)
  Receive Date: 20120208
  Receipt Date: 20120208
  Transmission Date: 20120608
  Serious: No
  Sender: FDA-Public Use
  Company Number: None

PATIENT
  Age: 52 Year
  Sex: Female
  Weight: 79.2 kg

DRUGS (1)
  1. CIPROFLOXACIN [Suspect]
     Indication: ANTIBIOTIC THERAPY
     Dosage: 500 MG BID PO
     Route: 048
     Dates: start: 20111228, end: 20120102

REACTIONS (6)
  - RASH [None]
  - ANXIETY [None]
  - CONFUSIONAL STATE [None]
  - TACHYCARDIA [None]
  - DYSPNOEA [None]
  - PRURITUS [None]
